FAERS Safety Report 23552044 (Version 1)
Quarter: 2024Q1

REPORT INFORMATION
  Report Type: Report from Study
  Country: IE (occurrence: IE)
  Receive Date: 20240222
  Receipt Date: 20240222
  Transmission Date: 20240410
  Serious: Yes (Hospitalization)
  Sender: FDA-Public Use
  Company Number: IE-AstraZeneca-2024A040358

PATIENT
  Age: 175 Day
  Sex: Male

DRUGS (4)
  1. SYNAGIS [Suspect]
     Active Substance: PALIVIZUMAB
     Indication: Premature baby
     Dosage: EVERY FOUR WEEKS
     Route: 030
     Dates: start: 20231020
  2. SYNAGIS [Suspect]
     Active Substance: PALIVIZUMAB
     Dosage: EVERY FOUR WEEKS
     Route: 030
     Dates: start: 20240116
  3. SYNAGIS [Suspect]
     Active Substance: PALIVIZUMAB
     Dosage: EVERY FOUR WEEKS
     Route: 030
     Dates: start: 20240214
  4. IRON [Concomitant]
     Active Substance: IRON
     Indication: Product used for unknown indication
     Dosage: ONCE A DAY

REACTIONS (2)
  - Fontanelle bulging [Recovered/Resolved]
  - Rhinovirus infection [Recovered/Resolved]

NARRATIVE: CASE EVENT DATE: 20240121
